FAERS Safety Report 5403636-4 (Version None)
Quarter: 2007Q3

REPORT INFORMATION
  Report Type: 
  Country: None (occurrence: None)
  Receive Date: 20070802
  Receipt Date: 20070724
  Transmission Date: 20080115
  Serious: Yes (Hospitalization)
  Sender: FDA-Public Use
  Company Number: PHBS2007FI12487

PATIENT
  Age: 54 Year
  Sex: Male

DRUGS (6)
  1. LEPONEX [Suspect]
     Indication: SCHIZOPHRENIA, PARANOID TYPE
     Dosage: UNK, UNK
     Route: 065
     Dates: start: 20030101
  2. VALPROATE SODIUM [Concomitant]
  3. LANSOPRAZOLE [Concomitant]
  4. TENOX [Concomitant]
  5. OPAMOX [Concomitant]
     Dosage: UNK, PRN
  6. MAGNESIUM SULFATE [Concomitant]

REACTIONS (18)
  - AORTIC VALVE INCOMPETENCE [None]
  - AORTIC VALVE REPLACEMENT [None]
  - BLOOD PRESSURE DIASTOLIC DECREASED [None]
  - C-REACTIVE PROTEIN INCREASED [None]
  - CARDIAC MURMUR [None]
  - COUGH [None]
  - DYSPNOEA [None]
  - ELECTROCARDIOGRAM QT PROLONGED [None]
  - ENDOCARDITIS [None]
  - FORCED EXPIRATORY VOLUME DECREASED [None]
  - MITRAL VALVE INCOMPETENCE [None]
  - MITRAL VALVE REPLACEMENT [None]
  - PEAK EXPIRATORY FLOW RATE DECREASED [None]
  - PERICARDIAL EFFUSION [None]
  - SUFFOCATION FEELING [None]
  - TACHYCARDIA [None]
  - UPPER RESPIRATORY TRACT INFECTION [None]
  - VENTRICULAR INTERNAL DIAMETER ABNORMAL [None]
